FAERS Safety Report 7962536-6 (Version None)
Quarter: 2011Q4

REPORT INFORMATION
  Report Type: 
  Country: None (occurrence: None)
  Receive Date: 20111207
  Receipt Date: 20111130
  Transmission Date: 20120403
  Serious: Yes (Hospitalization)
  Sender: FDA-Public Use
  Company Number: JP-GLAXOSMITHKLINE-B0763444A

PATIENT
  Sex: Female
  Weight: 48 kg

DRUGS (3)
  1. VALTREX [Suspect]
     Indication: HERPES ZOSTER
     Dosage: 3000MG PER DAY
     Route: 048
     Dates: start: 20111108, end: 20111112
  2. UNKNOWN DRUG [Concomitant]
     Indication: HYPERTENSION
     Route: 048
  3. ARASENA-A [Concomitant]
     Indication: HERPES ZOSTER
     Route: 061
     Dates: start: 20111108

REACTIONS (8)
  - RENAL FAILURE ACUTE [None]
  - CEREBROVASCULAR DISORDER [None]
  - DYSARTHRIA [None]
  - LOSS OF CONTROL OF LEGS [None]
  - SPEECH DISORDER [None]
  - ABDOMINAL PAIN UPPER [None]
  - NAUSEA [None]
  - VOMITING [None]
